FAERS Safety Report 8376511-3 (Version None)
Quarter: 2012Q1

REPORT INFORMATION
  Report Type: 
  Country: None (occurrence: None)
  Receive Date: 20120323
  Receipt Date: 20111003
  Transmission Date: 20120608
  Serious: Yes (Other)
  Sender: FDA-Public Use
  Company Number: 163-21880-11080605

PATIENT
  Age: 50 Year
  Sex: Male

DRUGS (9)
  1. PLAVIX [Concomitant]
  2. MS CONTIN [Concomitant]
  3. LOPRESSOR HCT (CO-BETALOC) [Concomitant]
  4. ASPIRIN [Concomitant]
  5. REVLIMID [Suspect]
     Indication: MULTIPLE MYELOMA
     Dosage: 25 MG, DAILY X 14, PO
     Route: 048
     Dates: start: 20110401
  6. METOPROLOL TARTRATE [Concomitant]
  7. DEXAMETHASONE [Concomitant]
  8. LISINOPRIL [Concomitant]
  9. PRCOCET (OXYCOCET) [Concomitant]

REACTIONS (5)
  - LOSS OF CONSCIOUSNESS [None]
  - BACK INJURY [None]
  - PARAESTHESIA [None]
  - FALL [None]
  - OEDEMA PERIPHERAL [None]
